FAERS Safety Report 9675342 (Version 1)
Quarter: 2013Q4

REPORT INFORMATION
  Report Type: Report from Study
  Country: US (occurrence: US)
  Receive Date: 20131107
  Receipt Date: 20131107
  Transmission Date: 20140711
  Serious: Yes (Other)
  Sender: FDA-Public Use
  Company Number: US-ROCHE-1297576

PATIENT
  Age: 15 Year
  Sex: Male

DRUGS (4)
  1. NUTROPIN [Suspect]
     Indication: HYPOPITUITARISM
     Route: 058
     Dates: start: 20121013, end: 20121128
  2. NUTROPIN [Suspect]
     Route: 058
     Dates: start: 20130111, end: 20130905
  3. NUTROPIN [Suspect]
     Route: 058
     Dates: start: 20130905
  4. ZYRTEC [Concomitant]
     Route: 048

REACTIONS (6)
  - Palpitations [Unknown]
  - Pyrexia [Unknown]
  - Fatigue [Unknown]
  - Chills [Unknown]
  - Decreased appetite [Unknown]
  - Thirst [Unknown]
